FAERS Safety Report 4982252-2 (Version None)
Quarter: 2006Q2

REPORT INFORMATION
  Report Type: 
  Country: None (occurrence: None)
  Receive Date: 20060424
  Receipt Date: 20060424
  Transmission Date: 20061013
  Serious: Yes (Life-Threatening, Hospitalization)
  Sender: FDA-Public Use
  Company Number: None

PATIENT
  Age: 54 Year
  Sex: Male
  Weight: 74.8435 kg

DRUGS (3)
  1. CELEBREX [Suspect]
     Indication: EYE PAIN
     Dosage: 200 MG -400 MG 1X/DAY AS NEEDED PO
     Route: 048
     Dates: start: 20040101, end: 20060415
  2. CELEBREX [Suspect]
     Indication: HEADACHE
     Dosage: 200 MG -400 MG 1X/DAY AS NEEDED PO
     Route: 048
     Dates: start: 20040101, end: 20060415
  3. CELEBREX [Suspect]
     Indication: NECK PAIN
     Dosage: 200 MG -400 MG 1X/DAY AS NEEDED PO
     Route: 048
     Dates: start: 20040101, end: 20060415

REACTIONS (1)
  - COLITIS ISCHAEMIC [None]
